FAERS Safety Report 4807556-5 (Version None)
Quarter: 2005Q4

REPORT INFORMATION
  Report Type: 
  Country: None (occurrence: None)
  Receive Date: 20051024
  Receipt Date: 20051012
  Transmission Date: 20060501
  Serious: Yes (Other)
  Sender: FDA-Public Use
  Company Number: US-ROCHE-420853

PATIENT
  Age: 24 Year
  Sex: Female

DRUGS (3)
  1. ACCUTANE [Suspect]
     Route: 065
  2. AMNESTEEM [Suspect]
     Route: 065
     Dates: start: 20040815, end: 20050115
  3. BIRTH CONTROL PILLS [Concomitant]
     Indication: CONTRACEPTION

REACTIONS (1)
  - ECTOPIC PREGNANCY [None]
